FAERS Safety Report 20696816 (Version 1)
Quarter: 2022Q2

REPORT INFORMATION
  Report Type: Spontaneous
  Country: US (occurrence: None)
  Receive Date: 20220408
  Receipt Date: 20220408
  Transmission Date: 20220720
  Serious: Yes (Hospitalization)
  Sender: FDA-Public Use
  Company Number: None

PATIENT
  Sex: Female

DRUGS (4)
  1. IMATINIB [Suspect]
     Active Substance: IMATINIB
     Indication: Gastrointestinal stromal tumour
     Dosage: TAKE 1 TABLET BY MOUTH DAILY. TAKE MEDICATION WITH A MEAL.
     Route: 048
     Dates: start: 20220126
  2. ANASTROZOLE TAB [Concomitant]
  3. GLEEVEC [Concomitant]
     Active Substance: IMATINIB MESYLATE
  4. SIMVASTATIN TAB [Concomitant]

REACTIONS (1)
  - Pathogen resistance [None]
